FAERS Safety Report 22609114 (Version 1)
Quarter: 2023Q2

REPORT INFORMATION
  Report Type: Spontaneous
  Country: US (occurrence: None)
  Receive Date: 20230615
  Receipt Date: 20230615
  Transmission Date: 20230722
  Serious: No
  Sender: FDA-Public Use
  Company Number: None

PATIENT
  Age: 67 Year
  Sex: Male

DRUGS (1)
  1. AMBRISENTAN [Suspect]
     Active Substance: AMBRISENTAN
     Indication: Pulmonary arterial hypertension
     Dosage: FREQUENCY : DAILY;?
     Route: 048
     Dates: start: 20161117

REACTIONS (6)
  - Flank pain [None]
  - Chest pain [None]
  - Pain [None]
  - Hypophagia [None]
  - Peripheral swelling [None]
  - Cholelithiasis [None]

NARRATIVE: CASE EVENT DATE: 20230501
